FAERS Safety Report 4669909-8 (Version None)
Quarter: 2005Q2

REPORT INFORMATION
  Report Type: 
  Country: None (occurrence: None)
  Receive Date: 20050523
  Receipt Date: 20050504
  Transmission Date: 20051028
  Serious: Yes (Disabling)
  Sender: FDA-Public Use
  Company Number: 200300434

PATIENT
  Age: 32 Year
  Sex: Female
  Weight: 65 kg

DRUGS (4)
  1. BOTOX PURIFIED NEUROTOXIN COMPLEX [Suspect]
     Indication: SKIN WRINKLING
     Dosage: 33 UNITS PRN IM
     Route: 030
  2. MAGNESIUM [Concomitant]
  3. CALCIUM GLUCONATE [Concomitant]
  4. COLLAGEN [Concomitant]

REACTIONS (17)
  - ANXIETY DISORDER [None]
  - ARTHRALGIA [None]
  - CHEST PAIN [None]
  - CONDUCTION DISORDER [None]
  - EPISTAXIS [None]
  - HYPERLIPIDAEMIA [None]
  - IMMUNE SYSTEM DISORDER [None]
  - INJECTION SITE HAEMORRHAGE [None]
  - INJECTION SITE PAIN [None]
  - INTERVERTEBRAL DISC DEGENERATION [None]
  - LYMPHOCYTE PERCENTAGE DECREASED [None]
  - MALAISE [None]
  - MYCOPLASMA SEROLOGY POSITIVE [None]
  - NEUTROPHIL PERCENTAGE INCREASED [None]
  - PERIPHERAL SENSORY NEUROPATHY [None]
  - VIBRATION TEST ABNORMAL [None]
  - VIRAL INFECTION [None]
